FAERS Safety Report 20257177 (Version 1)
Quarter: 2021Q4

REPORT INFORMATION
  Report Type: Spontaneous
  Country: US (occurrence: None)
  Receive Date: 20211230
  Receipt Date: 20211230
  Transmission Date: 20220303
  Serious: Yes (Hospitalization)
  Sender: FDA-Public Use
  Company Number: None

PATIENT
  Age: 83 Year
  Sex: Male
  Weight: 80 kg

DRUGS (1)
  1. CASIRIVIMAB\IMDEVIMAB [Suspect]
     Active Substance: CASIRIVIMAB\IMDEVIMAB
     Indication: COVID-19
     Dates: start: 20211220, end: 20211220

REACTIONS (8)
  - Infusion related reaction [None]
  - Tremor [None]
  - Chills [None]
  - Muscle rigidity [None]
  - Confusional state [None]
  - Speech disorder [None]
  - Movement disorder [None]
  - Seizure [None]

NARRATIVE: CASE EVENT DATE: 20211220
